FAERS Safety Report 25446394 (Version 1)
Quarter: 2025Q2

REPORT INFORMATION
  Report Type: Spontaneous
  Country: US (occurrence: US)
  Receive Date: 20250617
  Receipt Date: 20250617
  Transmission Date: 20250716
  Serious: Yes (Life-Threatening, Other)
  Sender: AMERICAN REGENT
  Company Number: US-AMERICAN REGENT INC-2025002409

PATIENT
  Sex: Female

DRUGS (1)
  1. FERRIC CARBOXYMALTOSE [Suspect]
     Active Substance: FERRIC CARBOXYMALTOSE
     Indication: Product used for unknown indication
     Route: 042
     Dates: start: 2025, end: 2025

REACTIONS (2)
  - Maternal exposure during pregnancy [Unknown]
  - Hypophosphataemia [Unknown]

NARRATIVE: CASE EVENT DATE: 20250101
